FAERS Safety Report 7830410-1 (Version None)
Quarter: 2011Q4

REPORT INFORMATION
  Report Type: 
  Country: None (occurrence: None)
  Receive Date: 20111021
  Receipt Date: 20111019
  Transmission Date: 20120403
  Serious: Yes (Other)
  Sender: FDA-Public Use
  Company Number: SG-SANOFI-AVENTIS-2011SA068405

PATIENT
  Age: 82 Year
  Sex: Male

DRUGS (3)
  1. VANCOMYCIN HCL [Suspect]
     Route: 065
  2. MEROPENEM [Suspect]
     Route: 065
  3. METRONIDAZOLE [Suspect]
     Route: 065

REACTIONS (1)
  - DRUG ERUPTION [None]
